FAERS Safety Report 4427282-4 (Version None)
Quarter: 2004Q3

REPORT INFORMATION
  Report Type: 
  Country: None (occurrence: None)
  Receive Date: 20040813
  Receipt Date: 20040813
  Transmission Date: 20050211
  Serious: Yes (Hospitalization)
  Sender: FDA-Public Use
  Company Number: None

PATIENT
  Age: 14 Year
  Sex: Female
  Weight: 69.8 kg

DRUGS (1)
  1. MINOCYCLINE HCL [Suspect]
     Indication: ACNE
     Dosage: 100 MG BID ORAL
     Route: 048
     Dates: start: 20040101, end: 20040413

REACTIONS (4)
  - BENIGN INTRACRANIAL HYPERTENSION [None]
  - MARKEDLY REDUCED DIETARY INTAKE [None]
  - SINUSITIS [None]
  - VISION BLURRED [None]
